FAERS Safety Report 8587096-0 (Version None)
Quarter: 2012Q3

REPORT INFORMATION
  Report Type: 
  Country: None (occurrence: None)
  Receive Date: 20120810
  Receipt Date: 20120803
  Transmission Date: 20120928
  Serious: Yes (Hospitalization)
  Sender: FDA-Public Use
  Company Number: DE-ROCHE-1052470

PATIENT
  Age: 57 Year
  Sex: Female
  Weight: 92 kg

DRUGS (7)
  1. COPEGUS [Suspect]
     Indication: HEPATITIS C
     Route: 048
     Dates: start: 20120106
  2. RAMIPRIL [Concomitant]
  3. TELAPREVIR [Suspect]
     Indication: HEPATITIS C
     Route: 048
     Dates: start: 20120106
  4. PEGASYS [Suspect]
     Indication: HEPATITIS C
     Route: 058
     Dates: start: 20120106
  5. METOPROLOL SUCCINATE [Concomitant]
  6. TORSEMIDE [Concomitant]
  7. ALDACTONE [Concomitant]

REACTIONS (3)
  - ERYSIPELAS [None]
  - ULCER [None]
  - FAT NECROSIS [None]
